FAERS Safety Report 7967755-0 (Version None)
Quarter: 2011Q4

REPORT INFORMATION
  Report Type: 
  Country: None (occurrence: None)
  Receive Date: 20111207
  Receipt Date: 20111123
  Transmission Date: 20120403
  Serious: Yes (Other)
  Sender: FDA-Public Use
  Company Number: TPA2011A07959

PATIENT
  Age: 72 Year
  Sex: Male

DRUGS (11)
  1. METFORMIN HCL [Concomitant]
  2. ACTOS [Suspect]
     Indication: TYPE 2 DIABETES MELLITUS
     Dosage: 30 MG, 1 IN 1 D, PER ORAL
     Route: 048
     Dates: start: 20030101, end: 20111107
  3. NORVASC [Concomitant]
  4. GLIPIZIDE [Concomitant]
  5. SYNTHROID [Concomitant]
  6. HYDROCHLOROTHIAZIDE [Concomitant]
  7. MULTIVITAMIN (ERGOCALCIFEROL, ASCORBIC ACID, PYRIDOXINE HYDROCHLORIDE, [Concomitant]
  8. VICODIN [Concomitant]
  9. LABETOLOL (LABETALOL) [Concomitant]
  10. LISINOPRIL [Concomitant]
  11. ASPIRIN [Concomitant]

REACTIONS (1)
  - BLADDER CANCER [None]
